FAERS Safety Report 9975988 (Version 1)
Quarter: 2014Q1

REPORT INFORMATION
  Report Type: Spontaneous
  Country: US (occurrence: US)
  Receive Date: 20140306
  Receipt Date: 20140306
  Transmission Date: 20141002
  Serious: No
  Sender: FDA-Public Use
  Company Number: US-PFIZER INC-2014063205

PATIENT
  Age: 57 Year
  Sex: Female
  Weight: 79.37 kg

DRUGS (2)
  1. LYRICA [Suspect]
     Indication: FIBROMYALGIA
     Dosage: 150 MG (2 CAPSULES OF 75 MG TWO TIMES A DAY), 2X/DAY
     Route: 048
     Dates: start: 2013
  2. TRAZODONE [Concomitant]
     Dosage: 25 MG, 1X/DAY

REACTIONS (2)
  - Pain [Unknown]
  - Blood cholesterol increased [Unknown]
